FAERS Safety Report 5346532-3 (Version None)
Quarter: 2007Q2

REPORT INFORMATION
  Report Type: 
  Country: None (occurrence: None)
  Receive Date: 20070605
  Receipt Date: 20070524
  Transmission Date: 20071010
  Serious: Yes (Hospitalization)
  Sender: FDA-Public Use
  Company Number: SE-PFIZER INC-2007043788

PATIENT
  Age: 50 Year
  Sex: Male

DRUGS (2)
  1. CHAMPIX [Suspect]
     Indication: EX-SMOKER
     Dosage: DAILY DOSE:2MG
     Route: 048
     Dates: start: 20070124, end: 20070227
  2. SIMVASTATIN [Concomitant]
     Route: 048

REACTIONS (1)
  - CONFUSIONAL STATE [None]
